FAERS Safety Report 7491346-1 (Version None)
Quarter: 2011Q2

REPORT INFORMATION
  Report Type: 
  Country: None (occurrence: None)
  Receive Date: 20110512
  Receipt Date: 20110430
  Transmission Date: 20111010
  Serious: Yes (Disabling, Other)
  Sender: FDA-Public Use
  Company Number: 2011MA005087

PATIENT

DRUGS (1)
  1. METOCLOPRAMIDE [Suspect]

REACTIONS (8)
  - EXTRAPYRAMIDAL DISORDER [None]
  - PAIN [None]
  - ECONOMIC PROBLEM [None]
  - TARDIVE DYSKINESIA [None]
  - INCORRECT DRUG ADMINISTRATION DURATION [None]
  - NERVOUS SYSTEM DISORDER [None]
  - MOVEMENT DISORDER [None]
  - MULTIPLE INJURIES [None]
